FAERS Safety Report 8619850 (Version 3)
Quarter: 2013Q4

REPORT INFORMATION
  Report Type: Report from Study
  Country: US (occurrence: US)
  Receive Date: 20120531
  Receipt Date: 20131031
  Transmission Date: 20140711
  Serious: Yes (Other)
  Sender: FDA-Public Use
  Company Number: US-009507513-2012SP027554

PATIENT
  Sex: Male

DRUGS (8)
  1. PEG-INTRON [Suspect]
     Indication: HEPATITIS C
     Dosage: UNK UNK, UNKNOWN
     Dates: start: 20120303
  2. REBETOL [Suspect]
     Indication: HEPATITIS C
     Dosage: UNK UNK, QAM
     Route: 065
     Dates: start: 20120303
  3. REBETOL [Suspect]
     Dosage: UNK UNK, QPM
     Route: 065
     Dates: start: 20120303
  4. REBETOL [Suspect]
     Dosage: UNK UNK, QAM
     Route: 065
  5. REBETOL [Suspect]
     Dosage: UNK UNK, QPM
     Route: 065
  6. REBETOL [Suspect]
     Dosage: UNK UNK, QAM
     Route: 065
  7. REBETOL [Suspect]
     Dosage: UNK UNK, QPM
     Route: 065
  8. VICTRELIS [Suspect]
     Indication: HEPATITIS C
     Dosage: UNK UNK, UNKNOWN
     Route: 065
     Dates: start: 20120331

REACTIONS (13)
  - Loss of consciousness [Unknown]
  - Injury [Unknown]
  - Fall [Unknown]
  - Contusion [Unknown]
  - Urine uric acid increased [Unknown]
  - Dysgeusia [Unknown]
  - Anaemia [Unknown]
  - Feeling abnormal [Unknown]
  - Haemoglobin decreased [Unknown]
  - White blood cell count decreased [Unknown]
  - Asthenia [Unknown]
  - Anxiety [Unknown]
  - Disturbance in attention [Unknown]
